FAERS Safety Report 7648567-4 (Version None)
Quarter: 2011Q3

REPORT INFORMATION
  Report Type: 
  Country: None (occurrence: None)
  Receive Date: 20110801
  Receipt Date: 20110727
  Transmission Date: 20111222
  Serious: Yes (Hospitalization, Other)
  Sender: FDA-Public Use
  Company Number: US-PFIZER INC-2011173101

PATIENT
  Age: 58 Year
  Sex: Male

DRUGS (2)
  1. TIKOSYN [Suspect]
  2. OXYMORPHONE HYDROCHLORIDE [Suspect]

REACTIONS (3)
  - ELECTROCARDIOGRAM QT PROLONGED [None]
  - RASH [None]
  - ATRIAL FIBRILLATION [None]
